FAERS Safety Report 10146228 (Version 2)
Quarter: 2014Q2

REPORT INFORMATION
  Report Type: Spontaneous
  Country: US (occurrence: US)
  Receive Date: 20140501
  Receipt Date: 20140605
  Transmission Date: 20141212
  Serious: No
  Sender: FDA-Public Use
  Company Number: US-PFIZER INC-2014119637

PATIENT
  Age: 51 Year
  Sex: Female
  Weight: 53.52 kg

DRUGS (1)
  1. LYRICA [Suspect]
     Dosage: 75 MG, 2X/DAY
     Route: 048
     Dates: start: 20140514

REACTIONS (2)
  - Drug dispensing error [Unknown]
  - Malaise [Unknown]
